FAERS Safety Report 6801792-4 (Version None)
Quarter: 2010Q2

REPORT INFORMATION
  Report Type: 
  Country: None (occurrence: None)
  Receive Date: 20100629
  Receipt Date: 20100618
  Transmission Date: 20101027
  Serious: Yes (Death)
  Sender: FDA-Public Use
  Company Number: PHHY2010US38641

PATIENT
  Sex: Female

DRUGS (2)
  1. RECLAST [Suspect]
  2. DIGOXIN [Concomitant]

REACTIONS (1)
  - CARDIAC ARREST [None]
